FAERS Safety Report 8431622-9 (Version None)
Quarter: 2012Q2

REPORT INFORMATION
  Report Type: 
  Country: None (occurrence: None)
  Receive Date: 20120613
  Receipt Date: 20120604
  Transmission Date: 20120825
  Serious: Yes (Hospitalization)
  Sender: FDA-Public Use
  Company Number: JP-VERTEX PHARMACEUTICALS INC.-AE-2012-007854

PATIENT
  Age: 46 Year
  Sex: Male

DRUGS (8)
  1. DEPAKENE [Concomitant]
     Route: 048
  2. VEGETAMIN-B [Concomitant]
     Route: 048
  3. ALLOPURINOL [Concomitant]
     Route: 048
  4. TELAVIC (TELAPREVIR) [Suspect]
     Indication: HEPATITIS C
     Route: 048
     Dates: start: 20120216, end: 20120510
  5. RIBAVIRIN [Concomitant]
     Indication: HEPATITIS C
     Route: 048
     Dates: start: 20120216
  6. ROHYPNOL [Concomitant]
     Route: 048
  7. LENDORMIN [Concomitant]
     Route: 048
  8. PEGINTERFERON ALFA-2B [Concomitant]
     Indication: HEPATITIS C
     Route: 051
     Dates: start: 20120216

REACTIONS (2)
  - DEPRESSION [None]
  - BLOOD CREATINE PHOSPHOKINASE INCREASED [None]
